FAERS Safety Report 19829172 (Version 1)
Quarter: 2021Q3

REPORT INFORMATION
  Report Type: Spontaneous
  Country: US (occurrence: US)
  Receive Date: 20210914
  Receipt Date: 20210914
  Transmission Date: 20211014
  Serious: Yes (Hospitalization, Other)
  Sender: FDA-Public Use
  Company Number: US-ELI_LILLY_AND_COMPANY-US202109000968

PATIENT
  Sex: Male

DRUGS (1)
  1. HUMALOG [Suspect]
     Active Substance: INSULIN LISPRO
     Indication: TYPE 1 DIABETES MELLITUS
     Dosage: 125 U, DAILY 80?125 U
     Route: 058
     Dates: start: 2007

REACTIONS (15)
  - Vitreous floaters [Unknown]
  - Gait disturbance [Unknown]
  - Retinal detachment [Unknown]
  - Rib fracture [Unknown]
  - Fat tissue increased [Unknown]
  - Road traffic accident [Recovered/Resolved]
  - Lower limb fracture [Unknown]
  - Post thrombotic syndrome [Recovered/Resolved]
  - Diabetic neuropathy [Not Recovered/Not Resolved]
  - Pelvic fracture [Unknown]
  - Fractured coccyx [Unknown]
  - Weight increased [Not Recovered/Not Resolved]
  - Sepsis [Recovered/Resolved]
  - Upper limb fracture [Unknown]
  - Cataract [Recovered/Resolved]

NARRATIVE: CASE EVENT DATE: 2010
